FAERS Safety Report 4454496-X (Version None)
Quarter: 2004Q3

REPORT INFORMATION
  Report Type: 
  Country: None (occurrence: None)
  Receive Date: 20040917
  Receipt Date: 20040917
  Transmission Date: 20050211
  Serious: Yes (Hospitalization)
  Sender: FDA-Public Use
  Company Number: None

PATIENT
  Sex: Male
  Weight: 104 kg

DRUGS (3)
  1. TRICOR [Suspect]
     Indication: HYPERCHOLESTEROLAEMIA
     Dosage: 160 MG DAILY ORAL
     Route: 048
     Dates: start: 20040810, end: 20040910
  2. TRICOR [Suspect]
     Indication: HYPERLIPIDAEMIA
     Dosage: 160 MG DAILY ORAL
     Route: 048
     Dates: start: 20040810, end: 20040910
  3. ZOCOR [Concomitant]

REACTIONS (4)
  - RENAL FAILURE ACUTE [None]
  - RHABDOMYOLYSIS [None]
  - SKIN HYPERPIGMENTATION [None]
  - VENOUS STASIS [None]
